FAERS Safety Report 12586644 (Version 1)
Quarter: 2016Q3

REPORT INFORMATION
  Report Type: Spontaneous
  Country: US (occurrence: None)
  Receive Date: 20160722
  Receipt Date: 20160722
  Transmission Date: 20161109
  Serious: Yes (Hospitalization)
  Sender: FDA-Public Use
  Company Number: None

PATIENT
  Age: 65 Year
  Sex: Female
  Weight: 107.1 kg

DRUGS (1)
  1. RIFAMPIN. [Suspect]
     Active Substance: RIFAMPIN
     Route: 048
     Dates: start: 20160630, end: 20160716

REACTIONS (3)
  - Disseminated intravascular coagulation [None]
  - Arthritis infective [None]
  - Pancytopenia [None]

NARRATIVE: CASE EVENT DATE: 20160716
